FAERS Safety Report 5486985-3 (Version None)
Quarter: 2007Q4

REPORT INFORMATION
  Report Type: 
  Country: None (occurrence: None)
  Receive Date: 20071016
  Receipt Date: 20071010
  Transmission Date: 20080405
  Serious: Yes (Other)
  Sender: FDA-Public Use
  Company Number: GB-WYE-G00448207

PATIENT
  Age: 36 Year
  Sex: Male

DRUGS (2)
  1. VENLAFAXIINE HCL [Suspect]
     Indication: DEPRESSION
  2. EFFEXOR XR [Suspect]
     Indication: DEPRESSION
     Route: 048

REACTIONS (4)
  - HEADACHE [None]
  - HYPERTENSION [None]
  - PHAEOCHROMOCYTOMA [None]
  - PHOTOPHOBIA [None]
